FAERS Safety Report 7707982-0 (Version None)
Quarter: 2011Q3

REPORT INFORMATION
  Report Type: 
  Country: None (occurrence: None)
  Receive Date: 20110824
  Receipt Date: 20110629
  Transmission Date: 20111222
  Serious: Yes (Hospitalization, Other)
  Sender: FDA-Public Use
  Company Number: PHHY2011JP15819

PATIENT
  Sex: Male
  Weight: 44 kg

DRUGS (4)
  1. EXJADE [Suspect]
     Indication: MYELODYSPLASTIC SYNDROME
     Dosage: 500 MG, DAILY
     Route: 048
     Dates: start: 20100204, end: 20100803
  2. BLOOD TRANSFUSION, AUXILIARY PRODUCTS [Concomitant]
     Dosage: UNK UKN, UNK
     Dates: start: 20081114
  3. RED BLOOD CELLS, CONCENTRATED [Concomitant]
     Dosage: 2 U, EVERY 2 WEEKS
     Dates: start: 20100204, end: 20100803
  4. BLOOD TRANSFUSION, AUXILIARY PRODUCTS [Concomitant]
     Dosage: UNK UKN, UNK
     Dates: start: 20100204

REACTIONS (11)
  - BLOOD PRESSURE DECREASED [None]
  - SOMNOLENCE [None]
  - PANCYTOPENIA [None]
  - WHITE BLOOD CELL COUNT ABNORMAL [None]
  - PYREXIA [None]
  - BLOOD CREATININE INCREASED [None]
  - PNEUMONIA ESCHERICHIA [None]
  - URINE OUTPUT DECREASED [None]
  - RENAL IMPAIRMENT [None]
  - BLOOD UREA INCREASED [None]
  - DEHYDRATION [None]
